FAERS Safety Report 23285612 (Version 1)
Quarter: 2023Q4

REPORT INFORMATION
  Report Type: Spontaneous
  Country: US (occurrence: None)
  Receive Date: 20231211
  Receipt Date: 20231211
  Transmission Date: 20240110
  Serious: Yes (Other)
  Sender: FDA-Public Use
  Company Number: None

PATIENT
  Sex: Female

DRUGS (1)
  1. HUMIRA [Suspect]
     Active Substance: ADALIMUMAB
     Indication: Polyarthritis
     Dosage: OTHER FREQUENCY : EVERY 14 DAYS;?
     Route: 058
     Dates: start: 20230829

REACTIONS (1)
  - Drug ineffective [None]
